FAERS Safety Report 14586628 (Version 1)
Quarter: 2018Q1

REPORT INFORMATION
  Report Type: Spontaneous
  Country: US (occurrence: US)
  Receive Date: 20180301
  Receipt Date: 20180301
  Transmission Date: 20180509
  Serious: No
  Sender: FDA-Public Use
  Company Number: US-VALIDUS PHARMACEUTICALS LLC-US-2017VAL001358

PATIENT

DRUGS (3)
  1. LASIX [Suspect]
     Active Substance: FUROSEMIDE
     Indication: PRODUCT USED FOR UNKNOWN INDICATION
     Dosage: 40 MG, QD
  2. ZOLOFT [Suspect]
     Active Substance: SERTRALINE HYDROCHLORIDE
     Indication: PRODUCT USED FOR UNKNOWN INDICATION
     Dosage: 50 MG, QD
  3. TOLTERODINE TARTRATE. [Suspect]
     Active Substance: TOLTERODINE TARTRATE
     Indication: PRODUCT USED FOR UNKNOWN INDICATION
     Dosage: 4 MG, QD

REACTIONS (23)
  - Dysphonia [Unknown]
  - Peripheral swelling [Unknown]
  - Visual impairment [Unknown]
  - Dysphagia [Unknown]
  - Foot deformity [Unknown]
  - Musculoskeletal stiffness [Unknown]
  - Contusion [Unknown]
  - Paraesthesia [Unknown]
  - Feeling cold [Unknown]
  - Myalgia [Unknown]
  - Dry eye [Unknown]
  - Anosmia [Unknown]
  - Skin discolouration [Unknown]
  - Sleep disorder [Unknown]
  - Haemorrhage [Unknown]
  - Swelling [Unknown]
  - Ocular hyperaemia [Unknown]
  - Impaired healing [Unknown]
  - Arthralgia [Unknown]
  - Dry mouth [Unknown]
  - Hypoaesthesia [Unknown]
  - Asthenia [Unknown]
  - Fatigue [Unknown]
